FAERS Safety Report 9585869 (Version 1)
Quarter: 2013Q4

REPORT INFORMATION
  Report Type: Spontaneous
  Country: FR (occurrence: None)
  Receive Date: 20131001
  Receipt Date: 20131001
  Transmission Date: 20140711
  Serious: Yes (Hospitalization)
  Sender: FDA-Public Use
  Company Number: SYM-2013-10988

PATIENT
  Age: 85 Year
  Sex: Male

DRUGS (3)
  1. FLAGYL [Suspect]
     Indication: PRODUCT USED FOR UNKNOWN INDICATION
     Route: 048
     Dates: start: 20130305, end: 20130311
  2. NOVATREX (METHOTREXATE) [Suspect]
     Indication: PRODUCT USED FOR UNKNOWN INDICATION
     Route: 048
     Dates: end: 20130311
  3. AUGMENTIN [Suspect]
     Indication: PRODUCT USED FOR UNKNOWN INDICATION
     Route: 048
     Dates: start: 20130305, end: 20130311

REACTIONS (11)
  - Pancytopenia [None]
  - Stomatitis [None]
  - Diarrhoea [None]
  - General physical health deterioration [None]
  - Dehydration [None]
  - Fungal infection [None]
  - Renal failure [None]
  - Plasmacytosis [None]
  - Bone marrow toxicity [None]
  - Biopsy bone marrow abnormal [None]
  - Infection [None]
